FAERS Safety Report 15744213 (Version 2)
Quarter: 2018Q4

REPORT INFORMATION
  Report Type: Other
  Country: NL (occurrence: NL)
  Receive Date: 20181220
  Receipt Date: 20181221
  Transmission Date: 20190205
  Serious: Yes (Other)
  Sender: FDA-Public Use
  Company Number: NL-APOTEX-2018AP027425

PATIENT
  Age: 14 Week
  Sex: Male
  Weight: 4.9 kg

DRUGS (2)
  1. DICLOFENAC SODIUM. [Suspect]
     Active Substance: DICLOFENAC SODIUM
     Indication: PAIN
     Dosage: 1X EEN ORALE PIL
     Route: 063
  2. DICLOFENAC                         /00372302/ [Suspect]
     Active Substance: DICLOFENAC
     Indication: PAIN
     Dosage: 1 SPUIT BIJ PIJNAANVAL
     Route: 063
     Dates: start: 20180825

REACTIONS (3)
  - Haematochezia [Recovered/Resolved]
  - Exposure via breast milk [Unknown]
  - Abdominal pain [Recovering/Resolving]

NARRATIVE: CASE EVENT DATE: 20180828
